FAERS Safety Report 4285356-5 (Version None)
Quarter: 2004Q1

REPORT INFORMATION
  Report Type: 
  Country: None (occurrence: None)
  Receive Date: 20040202
  Receipt Date: 20040121
  Transmission Date: 20041129
  Serious: Yes (Hospitalization)
  Sender: FDA-Public Use
  Company Number: UK057319

PATIENT
  Age: 68 Year
  Sex: Female
  Weight: 96 kg

DRUGS (6)
  1. PEGFILGRASTIM [Suspect]
     Indication: CHEMOTHERAPY
     Dosage: 6 MG, AFTER CHEMO, SC
     Route: 058
     Dates: start: 20030815
  2. CYCLOPHOSPHAMIDE [Concomitant]
  3. DOXORUBICIN HCL [Concomitant]
  4. VINCRISTINE SULFATE [Concomitant]
  5. PREDNISONE [Concomitant]
  6. RITUXIMAB [Concomitant]

REACTIONS (4)
  - ANAEMIA [None]
  - BODY TEMPERATURE INCREASED [None]
  - MEDICAL DEVICE COMPLICATION [None]
  - PULMONARY EMBOLISM [None]
